FAERS Safety Report 15357665 (Version 1)
Quarter: 2018Q3

REPORT INFORMATION
  Report Type: Spontaneous
  Country: TR (occurrence: TR)
  Receive Date: 20180906
  Receipt Date: 20180906
  Transmission Date: 20181010
  Serious: Yes (Life-Threatening, Other)
  Sender: FDA-Public Use
  Company Number: TR-FRESENIUS KABI-FK201809320

PATIENT
  Age: 36 Year
  Sex: Male

DRUGS (2)
  1. MEROPENEM (MANUFACTURER UNKNOWN) [Suspect]
     Active Substance: MEROPENEM
     Indication: ANTIBIOTIC THERAPY
     Dosage: VANCOMYCIN AND MEROPENEM DOSES WERE ADJUSTED ACCORDING TO ESTIMATED GLOMERULAR FILTRATION RATE
     Route: 065
  2. VANCOMYCIN (MANUFACTURER UNKNOWN) [Suspect]
     Active Substance: VANCOMYCIN
     Indication: ANTIBIOTIC THERAPY
     Dosage: VANCOMYCIN AND MEROPENEM DOSES WERE ADJUSTED ACCORDING TO ESTIMATED GLOMERULAR FILTRATION RATE
     Route: 065

REACTIONS (1)
  - Acute kidney injury [Unknown]
